FAERS Safety Report 18622916 (Version 1)
Quarter: 2020Q4

REPORT INFORMATION
  Report Type: Spontaneous
  Country: DE (occurrence: DE)
  Receive Date: 20201216
  Receipt Date: 20201216
  Transmission Date: 20210114
  Serious: Yes (Other)
  Sender: FDA-Public Use
  Company Number: DE-ROCHE-2731156

PATIENT
  Age: 58 Year

DRUGS (5)
  1. METHOTREXATE. [Suspect]
     Active Substance: METHOTREXATE
     Dosage: IN COMBINATION WITH ARAVA
     Route: 065
     Dates: start: 200910, end: 201003
  2. METHOTREXATE. [Suspect]
     Active Substance: METHOTREXATE
     Indication: POLYARTHRITIS
     Dosage: MONOTHERAPY
     Route: 065
     Dates: start: 200902, end: 200906
  3. METHOTREXATE. [Suspect]
     Active Substance: METHOTREXATE
     Dosage: IN COMBINATION WITH ROACTEMRA, THREE ADMINISTRATIONS
     Route: 065
     Dates: start: 200907, end: 200910
  4. MABTHERA [Suspect]
     Active Substance: RITUXIMAB
     Indication: POLYARTHRITIS
     Dosage: 2X 1G
     Route: 065
     Dates: start: 200901
  5. ROACTEMRA [Suspect]
     Active Substance: TOCILIZUMAB
     Indication: POLYARTHRITIS
     Dosage: IN COMBINATION WITH MEHTOTREXATE, THREE ADMINISTRATIONS
     Route: 065
     Dates: start: 200907, end: 200910

REACTIONS (7)
  - Reticulocyte count decreased [Unknown]
  - Pulmonary embolism [Unknown]
  - Lymphopenia [Unknown]
  - Bacterial infection [Unknown]
  - Leukocytosis [Unknown]
  - Drug ineffective [Unknown]
  - Anaemia [Unknown]

NARRATIVE: CASE EVENT DATE: 201003
